FAERS Safety Report 11760140 (Version 1)
Quarter: 2015Q4

REPORT INFORMATION
  Report Type: Spontaneous
  Country: US (occurrence: US)
  Receive Date: 20151120
  Receipt Date: 20151120
  Transmission Date: 20160304
  Serious: No
  Sender: FDA-Public Use
  Company Number: US-ASTRAZENECA-2015SE05751

PATIENT
  Age: 53 Year
  Sex: Female

DRUGS (1)
  1. SAXAGLIPTIN,METFORMIN HYDROCHLORIDE [Suspect]
     Active Substance: METFORMIN HYDROCHLORIDE\SAXAGLIPTIN HYDROCHLORIDE
     Indication: DIABETES MELLITUS
     Dosage: 2 DF, QD
     Route: 048
     Dates: start: 20141216

REACTIONS (3)
  - Vomiting [Unknown]
  - Medication residue present [Unknown]
  - Nausea [Unknown]
